FAERS Safety Report 11109482 (Version 2)
Quarter: 2015Q4

REPORT INFORMATION
  Report Type: Spontaneous
  Country: FR (occurrence: FR)
  Receive Date: 20150513
  Receipt Date: 20151224
  Transmission Date: 20160304
  Serious: Yes (Life-Threatening, Hospitalization, Other)
  Sender: FDA-Public Use
  Company Number: FR-SA-2015SA061351

PATIENT
  Age: 40 Year
  Sex: Female

DRUGS (1)
  1. LEMTRADA [Suspect]
     Active Substance: ALEMTUZUMAB
     Indication: RELAPSING-REMITTING MULTIPLE SCLEROSIS
     Route: 042
     Dates: start: 201504

REACTIONS (8)
  - Blindness [Unknown]
  - Movement disorder [Unknown]
  - Fatigue [Unknown]
  - Hemiplegia [Unknown]
  - Carotid artery dissection [Unknown]
  - Optic neuritis [Unknown]
  - Ischaemic stroke [Unknown]
  - Aphasia [Unknown]

NARRATIVE: CASE EVENT DATE: 2015
